FAERS Safety Report 4604957-5 (Version None)
Quarter: 2005Q1

REPORT INFORMATION
  Report Type: 
  Country: None (occurrence: None)
  Receive Date: 20050310
  Receipt Date: 20050310
  Transmission Date: 20050727
  Serious: Yes (Hospitalization)
  Sender: FDA-Public Use
  Company Number: None

PATIENT
  Age: 48 Year
  Sex: Male

DRUGS (9)
  1. CLOZAPINE [Suspect]
     Dosage: 400 MG BID ORAL
     Route: 048
  2. AMITRIPTYLINE HCL [Concomitant]
  3. OLANZAPINE [Concomitant]
  4. THEOPHYLLINE [Concomitant]
  5. LORAZEPAM [Concomitant]
  6. MONTELUKAST [Concomitant]
  7. TINATIDINE [Concomitant]
  8. FLUTICASONE PROPIONATE [Concomitant]
  9. ALBUTEROL [Concomitant]

REACTIONS (1)
  - CONVULSION [None]
